FAERS Safety Report 8479664-1 (Version None)
Quarter: 2012Q2

REPORT INFORMATION
  Report Type: 
  Country: None (occurrence: None)
  Receive Date: 20120629
  Receipt Date: 20120615
  Transmission Date: 20120825
  Serious: Yes (Other)
  Sender: FDA-Public Use
  Company Number: CHPA2012US013093

PATIENT
  Age: 51 Year
  Sex: Female

DRUGS (1)
  1. PHENYLEPHRINE HCL [Suspect]
     Indication: SINUSITIS
     Dosage: UNK, UNK
     Route: 045

REACTIONS (3)
  - NASAL DISORDER [None]
  - ASPHYXIA [None]
  - OFF LABEL USE [None]
